FAERS Safety Report 18681984 (Version 1)
Quarter: 2020Q4

REPORT INFORMATION
  Report Type: Spontaneous
  Country: RU (occurrence: RU)
  Receive Date: 20201230
  Receipt Date: 20201230
  Transmission Date: 20210114
  Serious: Yes (Other)
  Sender: FDA-Public Use
  Company Number: NVSC2020RU342579

PATIENT
  Age: 4 Year
  Sex: Female
  Weight: 15 kg

DRUGS (2)
  1. TRILEPTAL [Suspect]
     Active Substance: OXCARBAZEPINE
     Indication: TUBEROUS SCLEROSIS COMPLEX
  2. TRILEPTAL [Suspect]
     Active Substance: OXCARBAZEPINE
     Indication: EPILEPTIC ENCEPHALOPATHY
     Dosage: 2 ML (IN MORNING) AND 3 MG (IN EVENING)
     Route: 048
     Dates: start: 20170614, end: 20170929

REACTIONS (4)
  - Hyperactive pharyngeal reflex [Unknown]
  - Decreased appetite [Recovering/Resolving]
  - Drug ineffective for unapproved indication [Recovering/Resolving]
  - Epilepsy [Recovering/Resolving]
